FAERS Safety Report 9405546 (Version 1)
Quarter: 2013Q3

REPORT INFORMATION
  Report Type: Spontaneous
  Country: NL (occurrence: NL)
  Receive Date: 20130717
  Receipt Date: 20130717
  Transmission Date: 20140515
  Serious: Yes (Hospitalization)
  Sender: FDA-Public Use
  Company Number: NL-TEVA-418923ISR

PATIENT
  Age: 60 Year
  Sex: Male

DRUGS (5)
  1. OLANZAPINE [Suspect]
     Indication: BIPOLAR I DISORDER
     Dosage: 5 MILLIGRAM DAILY;
  2. PRAMIPEXOLE [Interacting]
     Indication: RESTLESS LEGS SYNDROME
  3. LITHIUM [Concomitant]
     Indication: BIPOLAR I DISORDER
  4. MIRTAZAPINE [Concomitant]
     Indication: BIPOLAR I DISORDER
     Dosage: 15 MILLIGRAM DAILY;
  5. OXAZEPAM [Concomitant]
     Indication: BIPOLAR I DISORDER
     Dosage: 10-30MG/DAY

REACTIONS (2)
  - Mania [Recovered/Resolved]
  - Drug interaction [Recovered/Resolved]
